FAERS Safety Report 6783875-0 (Version None)
Quarter: 2010Q2

REPORT INFORMATION
  Report Type: 
  Country: None (occurrence: None)
  Receive Date: 20100622
  Receipt Date: 20100611
  Transmission Date: 20101027
  Serious: Yes (Other)
  Sender: FDA-Public Use
  Company Number: US-PFIZER INC-2010073756

PATIENT
  Sex: Male
  Weight: 74.4 kg

DRUGS (6)
  1. SUTENT [Suspect]
     Indication: METASTASES TO LUNG
     Dosage: 37.5 MG, DAILY
     Route: 048
     Dates: start: 20100101, end: 20100401
  2. OMEPRAZOLE [Concomitant]
     Dosage: UNK
  3. LISINOPRIL [Concomitant]
     Dosage: UNK
  4. SIMVASTATIN [Concomitant]
     Dosage: UNK
  5. METOPROLOL [Concomitant]
     Dosage: UNK
  6. ECOTRIN [Concomitant]
     Dosage: 81 MG, UNK

REACTIONS (7)
  - DISEASE PROGRESSION [None]
  - HEADACHE [None]
  - HERPES ZOSTER [None]
  - INCREASED UPPER AIRWAY SECRETION [None]
  - RASH [None]
  - RENAL CELL CARCINOMA [None]
  - RENAL VEIN THROMBOSIS [None]
